FAERS Safety Report 5925130-4 (Version None)
Quarter: 2008Q4

REPORT INFORMATION
  Report Type: 
  Country: None (occurrence: None)
  Receive Date: 20081021
  Receipt Date: 20081015
  Transmission Date: 20090506
  Serious: Yes (Hospitalization)
  Sender: FDA-Public Use
  Company Number: FR-AVENTIS-200815588EU

PATIENT
  Age: 84 Year
  Sex: Female

DRUGS (11)
  1. FLUDEX                             /00340101/ [Suspect]
     Route: 048
     Dates: end: 20080623
  2. COAPROVEL [Suspect]
     Dosage: DOSE: 1 DF
     Route: 048
     Dates: end: 20080624
  3. RILMENIDINE [Concomitant]
  4. AMIODARONE HCL [Concomitant]
  5. LERCAN [Concomitant]
     Dates: end: 20080624
  6. LECTIL [Concomitant]
     Dates: end: 20080623
  7. KENZEN [Concomitant]
     Dates: end: 20080623
  8. OGAST [Concomitant]
     Dates: end: 20080623
  9. PREVISCAN                          /00789001/ [Concomitant]
  10. ZOPICLONE [Concomitant]
  11. LEVOTHYROX [Concomitant]

REACTIONS (3)
  - DRUG INTERACTION [None]
  - HYPOKALAEMIA [None]
  - HYPONATRAEMIA [None]
